FAERS Safety Report 5220617-4 (Version None)
Quarter: 2007Q1

REPORT INFORMATION
  Report Type: 
  Country: None (occurrence: None)
  Receive Date: 20070126
  Receipt Date: 20070118
  Transmission Date: 20070707
  Serious: Yes (Hospitalization)
  Sender: FDA-Public Use
  Company Number: US-AVENTIS-200710562GDDC

PATIENT
  Age: 73 Year
  Sex: Female
  Weight: 81.4 kg

DRUGS (20)
  1. TAXOTERE [Suspect]
     Route: 042
     Dates: start: 20061108, end: 20061108
  2. OXALIPLATIN [Suspect]
     Route: 042
     Dates: start: 20061108, end: 20061108
  3. BEVACIZUMAB [Suspect]
     Route: 042
     Dates: start: 20070110, end: 20070110
  4. LANOXIN [Concomitant]
     Indication: ATRIAL FIBRILLATION
  5. LIPITOR [Concomitant]
  6. RYTHMOL                            /00546302/ [Concomitant]
     Indication: ATRIAL FIBRILLATION
     Dosage: DOSE: 300 MG (1/2 TABLET)
     Route: 048
  7. TYLENOL [Concomitant]
     Dosage: DOSE: UNK
  8. TYLENOL [Concomitant]
     Indication: HEADACHE
     Dosage: DOSE: UNK
  9. ARICEPT [Concomitant]
     Dates: start: 20060710
  10. PERCOCET                           /00867901/ [Concomitant]
     Indication: PAIN
     Dosage: DOSE: 5/325 MG 1-2 TABLETS EVERY 6 HOURS
     Route: 048
  11. DECADRON [Concomitant]
     Indication: NAUSEA
     Dosage: DOSE: 8 MG PRIOR TO TAXOTERE AND AFTER (PRE-MED)
     Dates: start: 20060723, end: 20061109
  12. DECADRON [Concomitant]
     Indication: VOMITING
     Dosage: DOSE: 8 MG PRIOR TO TAXOTERE AND AFTER (PRE-MED)
     Dates: start: 20060723, end: 20061109
  13. ZOFRAN [Concomitant]
     Indication: NAUSEA
     Dosage: DOSE: 8 MG EVERY 12 HOURS
     Dates: start: 20060724
  14. ZOFRAN [Concomitant]
     Indication: VOMITING
     Dosage: DOSE: 8 MG EVERY 12 HOURS
     Dates: start: 20060724
  15. COUMADIN [Concomitant]
  16. COMPAZINE [Concomitant]
     Indication: NAUSEA
     Dosage: DOSE: 10 MG EVERY 6 HOURS
     Dates: start: 20060724
  17. COMPAZINE [Concomitant]
     Indication: VOMITING
     Dosage: DOSE: 10 MG EVERY 6 HOURS
     Dates: start: 20060724
  18. EMLA                               /00675501/ [Concomitant]
     Dosage: DOSE: APPLY TO IVAD SITE 1 HOUR PRIOR TO ACCESS
     Dates: start: 20060724
  19. BENADRYL                           /00000402/ [Concomitant]
     Indication: RASH
     Dates: start: 20061011, end: 20061014
  20. TAGAMET [Concomitant]
     Indication: RASH
     Dosage: DOSE: UNK
     Dates: start: 20061011, end: 20061014

REACTIONS (1)
  - TRANSIENT ISCHAEMIC ATTACK [None]
